FAERS Safety Report 16661335 (Version 2)
Quarter: 2019Q4

REPORT INFORMATION
  Report Type: Spontaneous
  Country: PR (occurrence: PR)
  Receive Date: 20190802
  Receipt Date: 20191014
  Transmission Date: 20200122
  Serious: Yes (Other)
  Sender: FDA-Public Use
  Company Number: PR-PFIZER INC-2019329606

PATIENT
  Age: 78 Year
  Sex: Female
  Weight: 78.47 kg

DRUGS (2)
  1. IBRANCE [Suspect]
     Active Substance: PALBOCICLIB
     Indication: BREAST CANCER FEMALE
     Dosage: 75 MG, CYCLIC [1 CAPSULE DAILY FOR 21 DAYS AND 7 DAYS OFF]
     Route: 048
     Dates: start: 20180518
  2. IBRANCE [Suspect]
     Active Substance: PALBOCICLIB
     Dosage: UNK
     Route: 048

REACTIONS (4)
  - Hepatic cancer [Unknown]
  - Rash [Unknown]
  - Weight decreased [Unknown]
  - Second primary malignancy [Unknown]

NARRATIVE: CASE EVENT DATE: 20190729
